FAERS Safety Report 7691183-9 (Version None)
Quarter: 2011Q3

REPORT INFORMATION
  Report Type: 
  Country: None (occurrence: None)
  Receive Date: 20110817
  Receipt Date: 20110817
  Transmission Date: 20111222
  Serious: No
  Sender: FDA-Public Use
  Company Number: None

PATIENT
  Sex: Male

DRUGS (1)
  1. TARCEVA [Suspect]
     Indication: HEPATIC NEOPLASM MALIGNANT
     Dosage: TARCEVA 100MG QD PO
     Route: 048
     Dates: start: 20110603, end: 20110706

REACTIONS (2)
  - MUSCLE SPASMS [None]
  - CONVULSION [None]
